FAERS Safety Report 22655101 (Version 1)
Quarter: 2023Q2

REPORT INFORMATION
  Report Type: Spontaneous
  Country: US (occurrence: US)
  Receive Date: 20230629
  Receipt Date: 20230629
  Transmission Date: 20230721
  Serious: Yes (Other)
  Sender: FDA-Public Use
  Company Number: US-SA-SAC20230627001151

PATIENT
  Sex: Male

DRUGS (2)
  1. AMBIEN [Suspect]
     Active Substance: ZOLPIDEM TARTRATE
     Dosage: UNK
     Route: 065
  2. TRIAZOLAM [Concomitant]
     Active Substance: TRIAZOLAM
     Dosage: UNK

REACTIONS (2)
  - Drug dependence [Unknown]
  - Increased appetite [Unknown]
